FAERS Safety Report 4355841-6 (Version None)
Quarter: 2004Q2

REPORT INFORMATION
  Report Type: 
  Country: None (occurrence: None)
  Receive Date: 20040505
  Receipt Date: 20040423
  Transmission Date: 20050107
  Serious: Yes (Other)
  Sender: FDA-Public Use
  Company Number: 2004018710

PATIENT
  Age: 55 Year
  Sex: Female
  Weight: 104.3273 kg

DRUGS (9)
  1. ZYRTEC [Suspect]
     Indication: HYPERSENSITIVITY
     Dosage: ORAL
     Route: 048
  2. INSULIN LISPRO (INSULIN LISPRO) [Concomitant]
  3. FLUTICASONE PROPIONATE [Concomitant]
  4. LORAZEPAM [Concomitant]
  5. CLONAZEPAM [Concomitant]
  6. ATENOLOL [Concomitant]
  7. DIPHENHYDRAMINE HCL [Concomitant]
  8. RANITIDINE HYDROCHLORIDE [Concomitant]
  9. CLONIDINE [Concomitant]

REACTIONS (2)
  - INTERVERTEBRAL DISC DEGENERATION [None]
  - LOCALISED OSTEOARTHRITIS [None]
